FAERS Safety Report 4375785-3 (Version None)
Quarter: 2004Q2

REPORT INFORMATION
  Report Type: 
  Country: None (occurrence: None)
  Receive Date: 20040609
  Receipt Date: 20040609
  Transmission Date: 20050107
  Serious: Yes (Life-Threatening, Hospitalization)
  Sender: FDA-Public Use
  Company Number: None

PATIENT
  Sex: Male
  Weight: 68 kg

DRUGS (8)
  1. WARFARIN SODIUM [Suspect]
     Indication: TRANSIENT ISCHAEMIC ATTACK
     Dosage: 7.5 MG / 5MG ALTERNATE
  2. EMEND [Concomitant]
  3. STEROID [Concomitant]
  4. ZOLOFT [Concomitant]
  5. LISINOPRIL [Concomitant]
  6. RANITIDINE [Concomitant]
  7. FUROSEMIDE [Concomitant]
  8. MORPHINE [Concomitant]

REACTIONS (7)
  - DECREASED APPETITE [None]
  - DEEP VEIN THROMBOSIS [None]
  - DRUG LEVEL BELOW THERAPEUTIC [None]
  - INTERNATIONAL NORMALISED RATIO INCREASED [None]
  - NAUSEA [None]
  - PULMONARY EMBOLISM [None]
  - VOMITING [None]
